FAERS Safety Report 5976029-9 (Version None)
Quarter: 2008Q4

REPORT INFORMATION
  Report Type: 
  Country: None (occurrence: None)
  Receive Date: 20081202
  Receipt Date: 20081120
  Transmission Date: 20090506
  Serious: Yes (Hospitalization, Other)
  Sender: FDA-Public Use
  Company Number: US-ROCHE-598775

PATIENT
  Sex: Female
  Weight: 51.1 kg

DRUGS (8)
  1. CAPECITABINE [Suspect]
     Dosage: LAST DOSE PRIOR TO EVENT: 17 NOV 2008
     Route: 048
     Dates: start: 20071204
  2. BEVACIZUMAB [Suspect]
     Dosage: DOSAGE FORM: 25 MG/ML, LAST DOSE PRIOR TO EVENT: 4 NOV 2008
     Route: 042
     Dates: start: 20071204
  3. OXALIPLATIN [Suspect]
     Dosage: DOSAGE FORM: 5 MG/ML, LAST DOSE PRIOR TO EVENT: 4 NOV 2008
     Route: 042
     Dates: start: 20071204
  4. CYMBALTA [Concomitant]
     Dates: start: 20070308
  5. PROZAC [Concomitant]
     Dates: start: 20080813
  6. COUMADIN [Concomitant]
     Dates: start: 20071212
  7. NEXIUM [Concomitant]
     Dates: start: 20081104
  8. RITALIN [Concomitant]
     Dates: start: 20071227

REACTIONS (3)
  - DEPRESSION [None]
  - IRRITABLE BOWEL SYNDROME [None]
  - PYREXIA [None]
